FAERS Safety Report 7740181-5 (Version None)
Quarter: 2011Q3

REPORT INFORMATION
  Report Type: 
  Country: None (occurrence: None)
  Receive Date: 20110909
  Receipt Date: 20110902
  Transmission Date: 20111222
  Serious: Yes (Life-Threatening, Other)
  Sender: FDA-Public Use
  Company Number: US-JNJFOC-20110806007

PATIENT
  Sex: Male

DRUGS (5)
  1. FLEXERIL [Suspect]
     Indication: PRODUCT USED FOR UNKNOWN INDICATION
     Route: 048
  2. ATIVAN [Concomitant]
     Route: 065
  3. NUCYNTA [Suspect]
     Indication: INTERVERTEBRAL DISC PROTRUSION
     Dosage: 1-2 PER DAY
     Route: 048
     Dates: start: 20091030
  4. NUCYNTA [Suspect]
     Indication: PAIN
     Dosage: 1-2 PER DAY
     Route: 048
     Dates: start: 20091030
  5. ADVIL LIQUI-GELS [Concomitant]
     Indication: PAIN
     Route: 048

REACTIONS (1)
  - PLATELET COUNT DECREASED [None]
